FAERS Safety Report 4449914-7 (Version None)
Quarter: 2004Q3

REPORT INFORMATION
  Report Type: 
  Country: None (occurrence: None)
  Receive Date: 20040902
  Receipt Date: 20040405
  Transmission Date: 20050211
  Serious: No
  Sender: FDA-Public Use
  Company Number: 2004-114917-NL

PATIENT
  Sex: Female

DRUGS (1)
  1. NUVARING [Suspect]
     Dosage: DF DAILY VAGINAL
     Route: 067
     Dates: start: 20040222, end: 20040301

REACTIONS (2)
  - ALOPECIA [None]
  - METRORRHAGIA [None]
